FAERS Safety Report 5508451-9 (Version None)
Quarter: 2007Q4

REPORT INFORMATION
  Report Type: 
  Country: None (occurrence: None)
  Receive Date: 20071107
  Receipt Date: 20071029
  Transmission Date: 20080405
  Serious: Yes (Other)
  Sender: FDA-Public Use
  Company Number: US-JNJFOC-20071100061

PATIENT
  Sex: Female
  Weight: 75.75 kg

DRUGS (12)
  1. DURAGESIC-100 [Suspect]
     Route: 062
  2. DURAGESIC-100 [Suspect]
     Route: 062
  3. DURAGESIC-100 [Suspect]
     Indication: BACK PAIN
     Route: 062
  4. SKELAXIN [Concomitant]
     Indication: MUSCLE SPASMS
     Dosage: HALF AN 800MG TABLET
     Route: 048
  5. GABAPENTIN [Concomitant]
     Indication: NEURALGIA
     Route: 048
  6. NORCO [Concomitant]
     Indication: BREAKTHROUGH PAIN
     Route: 048
  7. PERCODAN [Concomitant]
     Indication: BREAKTHROUGH PAIN
     Route: 048
  8. FIORICET [Concomitant]
     Indication: MIGRAINE
     Route: 048
  9. PREVACID [Concomitant]
     Indication: GASTROOESOPHAGEAL REFLUX DISEASE
     Route: 048
  10. ATENOLOL [Concomitant]
     Indication: HYPERTENSION
     Route: 048
  11. AMBIEN [Concomitant]
     Indication: INSOMNIA
     Dosage: AT BEDTIME
     Route: 048
  12. LORAZEPAM [Concomitant]
     Indication: ANXIETY
     Route: 048

REACTIONS (8)
  - BREAST CANCER [None]
  - FEELING ABNORMAL [None]
  - HYPERHIDROSIS [None]
  - INCORRECT DRUG ADMINISTRATION DURATION [None]
  - MALAISE [None]
  - NEURALGIA [None]
  - PAIN [None]
  - WRONG TECHNIQUE IN DRUG USAGE PROCESS [None]
